FAERS Safety Report 23267558 (Version 1)
Quarter: 2023Q4

REPORT INFORMATION
  Report Type: Spontaneous
  Country: US (occurrence: None)
  Receive Date: 20231205
  Receipt Date: 20231205
  Transmission Date: 20240110
  Serious: Yes (Other)
  Sender: FDA-Public Use
  Company Number: None

PATIENT
  Age: 36 Year
  Sex: Male
  Weight: 96.75 kg

DRUGS (4)
  1. VTAMA [Suspect]
     Active Substance: TAPINAROF
     Indication: Psoriasis
     Dosage: OTHER QUANTITY : 2.12 OUNCE(S);?FREQUENCY : DAILY;?
     Route: 061
     Dates: start: 20231117, end: 20231202
  2. DEVICE [Concomitant]
     Active Substance: DEVICE
  3. clobetasol propionate foam (0.05%) [Concomitant]
  4. triamcinolone (0.025%) [Concomitant]

REACTIONS (4)
  - Genital tract inflammation [None]
  - Skin swelling [None]
  - Pruritus genital [None]
  - Genital pain [None]

NARRATIVE: CASE EVENT DATE: 20231201
